FAERS Safety Report 5474241-9 (Version None)
Quarter: 2007Q4

REPORT INFORMATION
  Report Type: 
  Country: None (occurrence: None)
  Receive Date: 20071002
  Receipt Date: 20070524
  Transmission Date: 20080405
  Serious: No
  Sender: FDA-Public Use
  Company Number: US-ASTRAZENECA-2007UW12824

PATIENT
  Age: 80 Year
  Sex: Female
  Weight: 67.1 kg

DRUGS (5)
  1. ARIMIDEX [Suspect]
     Indication: BREAST CANCER
     Route: 048
  2. SYNTHROID [Concomitant]
  3. PRILOSEC [Concomitant]
  4. VITAMINS [Concomitant]
  5. STOOL SOFTENER [Concomitant]

REACTIONS (3)
  - ILL-DEFINED DISORDER [None]
  - PAIN IN EXTREMITY [None]
  - PARAESTHESIA [None]
